FAERS Safety Report 9041122 (Version 1)
Quarter: 2013Q1

REPORT INFORMATION
  Report Type: Spontaneous
  Country: US (occurrence: None)
  Receive Date: 20130114
  Receipt Date: 20130114
  Transmission Date: 20140127
  Serious: Yes (Hospitalization)
  Sender: FDA-Public Use
  Company Number: DSU-2012-09190

PATIENT
  Age: 87 Year
  Sex: Female

DRUGS (4)
  1. BENICAR [Suspect]
     Indication: HYPERTENSION
     Route: 048
     Dates: start: 20080729
  2. NEXIUM (ESOMEPRAZOLE MAGNESIUM) (ESOMEPRAZOLE MAGNESIUM) [Concomitant]
     Indication: PRODUCT USED FOR UNKNOWN INDICATION
  3. ESTRADIOL (ESTRADIOL) (ESTRADIOL) [Concomitant]
     Indication: PRODUCT USED FOR UNKNOWN INDICATION
  4. AMBIEN (ZOLIDEM TARTRATE) (ZOLPIDEM TARTRATE) [Concomitant]
     Indication: PRODUCT USED FOR UNKNOWN INDICATION

REACTIONS (5)
  - Diarrhoea [None]
  - Coeliac disease [None]
  - Hypotension [None]
  - Dehydration [None]
  - Malnutrition [None]
